FAERS Safety Report 6172254-5 (Version None)
Quarter: 2009Q2

REPORT INFORMATION
  Report Type: 
  Country: None (occurrence: None)
  Receive Date: 20090429
  Receipt Date: 20090423
  Transmission Date: 20091009
  Serious: No
  Sender: FDA-Public Use
  Company Number: US-JNJFOC-20090406477

PATIENT
  Sex: Male
  Weight: 79.38 kg

DRUGS (5)
  1. DURAGESIC-100 [Suspect]
     Route: 062
  2. DURAGESIC-100 [Suspect]
     Route: 062
  3. DURAGESIC-100 [Suspect]
     Indication: PAIN
     Route: 062
  4. AMBIEN [Concomitant]
     Indication: SLEEP DISORDER THERAPY
     Dosage: ONCE DAY
     Route: 048
  5. PERCOCET [Concomitant]
     Indication: PAIN
     Dosage: AS NEEDED
     Route: 048

REACTIONS (5)
  - DRUG INEFFECTIVE [None]
  - DRUG PRESCRIBING ERROR [None]
  - INAPPROPRIATE SCHEDULE OF DRUG ADMINISTRATION [None]
  - PRODUCT QUALITY ISSUE [None]
  - WITHDRAWAL SYNDROME [None]
